FAERS Safety Report 23976830 (Version 1)
Quarter: 2024Q2

REPORT INFORMATION
  Report Type: Spontaneous
  Country: US (occurrence: US)
  Receive Date: 20240614
  Receipt Date: 20240614
  Transmission Date: 20240716
  Serious: Yes (Other)
  Sender: FDA-Public Use
  Company Number: US-OTSUKA-2024_015741

PATIENT
  Age: 23 Year
  Sex: Male
  Weight: 81.65 kg

DRUGS (15)
  1. ABILIFY MAINTENA [Suspect]
     Active Substance: ARIPIPRAZOLE
     Indication: Anxiety
     Dosage: UNK, QM
     Route: 065
     Dates: start: 20240520
  2. ABILIFY MAINTENA [Suspect]
     Active Substance: ARIPIPRAZOLE
     Indication: Depression
  3. ABILIFY MAINTENA [Suspect]
     Active Substance: ARIPIPRAZOLE
     Indication: Attention deficit hyperactivity disorder
  4. ABILIFY MAINTENA [Suspect]
     Active Substance: ARIPIPRAZOLE
     Indication: Autism spectrum disorder
  5. ABILIFY [Suspect]
     Active Substance: ARIPIPRAZOLE
     Indication: Attention deficit hyperactivity disorder
     Dosage: 10 MG, QD
     Route: 048
  6. ABILIFY [Suspect]
     Active Substance: ARIPIPRAZOLE
     Indication: Autism spectrum disorder
  7. ARIPIPRAZOLE [Suspect]
     Active Substance: ARIPIPRAZOLE
     Indication: Anxiety
     Dosage: 10 MG, QD
     Route: 065
  8. ARIPIPRAZOLE [Suspect]
     Active Substance: ARIPIPRAZOLE
     Indication: Depression
  9. CELECOXIB [Suspect]
     Active Substance: CELECOXIB
     Indication: Depression
     Dosage: 10 MG
     Route: 065
  10. CELECOXIB [Suspect]
     Active Substance: CELECOXIB
     Dosage: 20 MG
     Route: 065
     Dates: start: 20240520
  11. CELECOXIB [Suspect]
     Active Substance: CELECOXIB
     Dosage: 10 MG
     Route: 065
     Dates: start: 20240602
  12. EVEKEO [Concomitant]
     Active Substance: AMPHETAMINE SULFATE
     Indication: Attention deficit hyperactivity disorder
     Dosage: UNK
     Route: 065
  13. STRATTERA [Concomitant]
     Active Substance: ATOMOXETINE HYDROCHLORIDE
     Indication: Product used for unknown indication
     Dosage: 2 AT NIGHT
     Route: 065
  14. REMERON [Concomitant]
     Active Substance: MIRTAZAPINE
     Indication: Sleep disorder
     Dosage: UNK
     Route: 065
  15. VISTARIL [Concomitant]
     Active Substance: HYDROXYZINE PAMOATE
     Indication: Sleep disorder
     Dosage: UNK
     Route: 065

REACTIONS (11)
  - Hallucination, visual [Not Recovered/Not Resolved]
  - Crying [Not Recovered/Not Resolved]
  - Phobia of driving [Not Recovered/Not Resolved]
  - Paranoia [Not Recovered/Not Resolved]
  - Fear [Not Recovered/Not Resolved]
  - Headache [Recovered/Resolved]
  - Drug ineffective for unapproved indication [Unknown]
  - Refusal of treatment by relative [Unknown]
  - Therapy change [Not Recovered/Not Resolved]
  - Off label use [Not Recovered/Not Resolved]
  - Drug monitoring procedure not performed [Unknown]

NARRATIVE: CASE EVENT DATE: 20240520
